FAERS Safety Report 4286411-6 (Version None)
Quarter: 2004Q1

REPORT INFORMATION
  Report Type: 
  Country: None (occurrence: None)
  Receive Date: 20040126
  Receipt Date: 20021223
  Transmission Date: 20041129
  Serious: No
  Sender: FDA-Public Use
  Company Number: 02P-163-0203773-00

PATIENT
  Age: 64 Year
  Sex: Male

DRUGS (5)
  1. TERAZOSIN HYDROCHLORIDE [Suspect]
     Dosage: 10 MG, 1 IN 1 D, SEE IMAGE
     Dates: start: 20021001, end: 20021003
  2. TERAZOSIN HYDROCHLORIDE [Suspect]
     Dosage: 10 MG, 1 IN 1 D, SEE IMAGE
     Dates: start: 20021004, end: 20021006
  3. TERAZOSIN HYDROCHLORIDE [Suspect]
     Dosage: 10 MG, 1 IN 1 D, SEE IMAGE
     Dates: start: 20021007, end: 20021010
  4. TERAZOSIN HYDROCHLORIDE [Suspect]
     Dosage: 10 MG, 1 IN 1 D, SEE IMAGE
     Dates: start: 20021015, end: 20021016
  5. STUDY DRUG (VARDENAFIL 10MG OR VARDENAFIL 20MG OR PLACEBO) [Suspect]
     Dosage: 10 MG, 1 IN 1 D, ORAL
     Route: 048
     Dates: start: 20021015, end: 20021015

REACTIONS (2)
  - DIZZINESS POSTURAL [None]
  - ORTHOSTATIC HYPOTENSION [None]
